FAERS Safety Report 25835109 (Version 1)
Quarter: 2025Q3

REPORT INFORMATION
  Report Type: Spontaneous
  Country: EU (occurrence: EU)
  Receive Date: 20250923
  Receipt Date: 20250923
  Transmission Date: 20251020
  Serious: Yes (Hospitalization, Other)
  Sender: GENMAB
  Company Number: EU-ABBVIE-6464151

PATIENT
  Age: 66 Year
  Sex: Male

DRUGS (3)
  1. EPCORITAMAB [Suspect]
     Active Substance: EPCORITAMAB
     Indication: Diffuse large B-cell lymphoma recurrent
     Route: 058
     Dates: start: 202504
  2. EPCORITAMAB [Suspect]
     Active Substance: EPCORITAMAB
     Indication: Prophylaxis
  3. MEDROL [Concomitant]
     Active Substance: METHYLPREDNISOLONE
     Indication: Product used for unknown indication
     Route: 048

REACTIONS (9)
  - Gastrointestinal haemorrhage [Unknown]
  - Duodenal ulcer haemorrhage [Unknown]
  - Shock haemorrhagic [Unknown]
  - Renal tubular necrosis [Unknown]
  - Haemodynamic instability [Unknown]
  - Acute kidney injury [Recovered/Resolved]
  - Cytokine release syndrome [Unknown]
  - Investigation abnormal [Unknown]
  - Thrombocytopenia [Unknown]

NARRATIVE: CASE EVENT DATE: 20250101
